FAERS Safety Report 9999767 (Version 2)
Quarter: 2014Q3

REPORT INFORMATION
  Report Type: Spontaneous
  Country: CH (occurrence: CH)
  Receive Date: 20140312
  Receipt Date: 20140704
  Transmission Date: 20150326
  Serious: Yes (Other)
  Sender: FDA-Public Use
  Company Number: CH-ASTRAZENECA-2014SE15862

PATIENT
  Age: 25379 Day
  Sex: Male

DRUGS (9)
  1. BRILIQUE [Suspect]
     Active Substance: TICAGRELOR
     Indication: THROMBOSIS IN DEVICE
     Route: 048
     Dates: start: 20140105
  2. BRILIQUE [Suspect]
     Active Substance: TICAGRELOR
     Indication: NO THERAPEUTIC RESPONSE
     Route: 048
     Dates: start: 20130510, end: 20131209
  3. ATACAND PLUS [Concomitant]
     Active Substance: CANDESARTAN CILEXETIL\HYDROCHLOROTHIAZIDE
     Dosage: 16/12.5MG, DAILY
  4. BRILIQUE [Suspect]
     Active Substance: TICAGRELOR
     Indication: THROMBOSIS IN DEVICE
     Route: 048
     Dates: start: 20130510, end: 20131209
  5. METO ZEROK [Concomitant]
     Active Substance: METOPROLOL SUCCINATE
  6. CRESTOR [Concomitant]
     Active Substance: ROSUVASTATIN CALCIUM
  7. BRILIQUE [Suspect]
     Active Substance: TICAGRELOR
     Indication: NO THERAPEUTIC RESPONSE
     Route: 048
     Dates: start: 20140105
  8. ASPIRIN CARDIO [Concomitant]
     Active Substance: ASPIRIN
  9. ZANIDIP [Concomitant]
     Active Substance: LERCANIDIPINE HYDROCHLORIDE

REACTIONS (6)
  - Proteinuria [Recovering/Resolving]
  - Blood creatinine increased [Recovering/Resolving]
  - Leukocyturia [Recovering/Resolving]
  - Tubulointerstitial nephritis [Recovering/Resolving]
  - Arterial disorder [Recovering/Resolving]
  - Focal segmental glomerulosclerosis [Recovering/Resolving]

NARRATIVE: CASE EVENT DATE: 20130510
